FAERS Safety Report 6681236-6 (Version None)
Quarter: 2010Q2

REPORT INFORMATION
  Report Type: 
  Country: None (occurrence: None)
  Receive Date: 20100414
  Receipt Date: 20090513
  Transmission Date: 20101027
  Serious: No
  Sender: FDA-Public Use
  Company Number: US-KINGPHARMUSA00001-K200900583

PATIENT
  Sex: Female

DRUGS (5)
  1. SKELAXIN [Suspect]
     Dosage: UNK
  2. LYRICA [Suspect]
     Dosage: UNK
  3. IBUPROFEN [Suspect]
     Dosage: UNK
  4. HYDROCHLOROTHIAZIDE [Suspect]
     Dosage: UNK
  5. NAPROXEN [Suspect]
     Dosage: UNK

REACTIONS (2)
  - MYALGIA [None]
  - OEDEMA PERIPHERAL [None]
